FAERS Safety Report 4445998-0 (Version None)
Quarter: 2004Q3

REPORT INFORMATION
  Report Type: 
  Country: None (occurrence: None)
  Receive Date: 20040903
  Receipt Date: 20040823
  Transmission Date: 20050211
  Serious: Yes (Disabling)
  Sender: FDA-Public Use
  Company Number: 2004027892

PATIENT
  Age: 47 Year
  Sex: Female
  Weight: 63.5036 kg

DRUGS (2)
  1. RELPAX [Suspect]
     Indication: MIGRAINE
     Dosage: (40 MG), ORAL
     Route: 048
     Dates: start: 20030101
  2. AXOTAL (OLD FARM) (BUTALBITAL, CAFFEINE, PARACETAMOL) [Concomitant]

REACTIONS (1)
  - DRUG INEFFECTIVE [None]
